FAERS Safety Report 11729839 (Version 1)
Quarter: 2015Q4

REPORT INFORMATION
  Report Type: Report from Study
  Country: US (occurrence: US)
  Receive Date: 20151112
  Receipt Date: 20151112
  Transmission Date: 20160304
  Serious: Yes (Other)
  Sender: FDA-Public Use
  Company Number: US-GILEAD-2015-0181557

PATIENT
  Age: 62 Year
  Sex: Male

DRUGS (2)
  1. RANOLAZINE [Suspect]
     Active Substance: RANOLAZINE
     Dosage: 500 MG, UNK
     Route: 048
     Dates: start: 20151105
  2. RANOLAZINE [Suspect]
     Active Substance: RANOLAZINE
     Indication: ANGINA PECTORIS
     Dosage: UNK MG, UNK
     Route: 048

REACTIONS (1)
  - Angioplasty [Unknown]

NARRATIVE: CASE EVENT DATE: 20151104
